FAERS Safety Report 9837376 (Version 1)
Quarter: 2014Q1

REPORT INFORMATION
  Report Type: Spontaneous
  Country: US (occurrence: None)
  Receive Date: 20140117
  Receipt Date: 20140117
  Transmission Date: 20141002
  Serious: Yes (Other)
  Sender: FDA-Public Use
  Company Number: None

PATIENT
  Age: 50 Year
  Sex: Male
  Weight: 73.48 kg

DRUGS (1)
  1. LIDOCAINE HCL [Suspect]
     Indication: EPIDURAL INJECTION

REACTIONS (4)
  - Injection site pain [None]
  - Product contamination [None]
  - Pain [None]
  - Product quality issue [None]
